FAERS Safety Report 8217774 (Version 2)
Quarter: 2013Q2

REPORT INFORMATION
  Report Type: Report from Study
  Country: JP (occurrence: JP)
  Receive Date: 20111101
  Receipt Date: 20130409
  Transmission Date: 20140414
  Serious: Yes (Hospitalization)
  Sender: FDA-Public Use
  Company Number: JP-GLAXOSMITHKLINE-B0711755A

PATIENT
  Age: 69 Year
  Sex: Female
  Weight: 41 kg

DRUGS (26)
  1. TYKERB [Suspect]
     Indication: BREAST CANCER
     Route: 048
     Dates: start: 20100813, end: 20101219
  2. TYKERB [Suspect]
     Indication: BREAST CANCER
     Route: 048
     Dates: start: 20101222
  3. XELODA [Suspect]
     Indication: PRODUCT USED FOR UNKNOWN INDICATION
     Route: 048
     Dates: start: 20100813, end: 20100815
  4. XELODA [Suspect]
     Indication: PRODUCT USED FOR UNKNOWN INDICATION
     Route: 048
     Dates: start: 20100907, end: 20101014
  5. XELODA [Suspect]
     Indication: PRODUCT USED FOR UNKNOWN INDICATION
     Route: 048
     Dates: start: 20101029, end: 20101202
  6. XELODA [Suspect]
     Indication: PRODUCT USED FOR UNKNOWN INDICATION
     Route: 048
     Dates: start: 20110205, end: 20110311
  7. OXYCONTIN [Suspect]
     Indication: CANCER PAIN
     Route: 048
     Dates: start: 20101203, end: 20101210
  8. LEDERMYCIN [Concomitant]
     Indication: INAPPROPRIATE ANTIDIURETIC HORMONE SECRETION
     Route: 048
     Dates: end: 20100817
  9. FUROSEMIDE [Concomitant]
     Indication: INAPPROPRIATE ANTIDIURETIC HORMONE SECRETION
     Route: 048
     Dates: start: 20100816, end: 20101217
  10. ATELEC [Concomitant]
     Indication: HYPERTENSION
     Route: 048
     Dates: end: 20100817
  11. LOXONIN [Concomitant]
     Indication: CANCER PAIN
     Route: 048
     Dates: start: 20100813, end: 20101217
  12. TAKEPRON [Concomitant]
     Indication: PROPHYLAXIS
     Route: 048
     Dates: start: 20100813, end: 20100820
  13. MARZULENE-S [Concomitant]
     Indication: PROPHYLAXIS
     Route: 048
     Dates: start: 20100813
  14. PYDOXAL [Concomitant]
     Indication: PROPHYLAXIS
     Route: 048
     Dates: start: 20100813, end: 20100817
  15. PYDOXAL [Concomitant]
     Indication: PROPHYLAXIS
     Route: 048
     Dates: start: 20100907, end: 20100920
  16. LANSOPRAZOLE [Concomitant]
     Indication: PROPHYLAXIS
     Route: 048
     Dates: start: 20100821
  17. ZOMETA [Concomitant]
     Indication: METASTASES TO BONE
     Route: 042
     Dates: start: 20060727
  18. OXINORM [Concomitant]
     Indication: CANCER PAIN
     Route: 048
     Dates: start: 20101114, end: 20101210
  19. NOVAMIN [Concomitant]
     Indication: PROPHYLAXIS
     Route: 048
     Dates: start: 20101203, end: 20101210
  20. MAGLAX [Concomitant]
     Indication: CONSTIPATION PROPHYLAXIS
     Route: 048
     Dates: start: 20101203
  21. CELECOX [Concomitant]
     Indication: CANCER PAIN
     Route: 048
     Dates: start: 20101217, end: 20101219
  22. LOXOPROFEN [Concomitant]
     Indication: CANCER PAIN
     Route: 048
     Dates: start: 20101220
  23. LOXOPROFEN [Concomitant]
     Indication: CANCER PAIN
     Route: 048
     Dates: start: 20110304
  24. CALONAL [Concomitant]
     Indication: CANCER PAIN
     Route: 048
     Dates: start: 20110111
  25. AZUNOL [Concomitant]
     Indication: METASTASES TO SKIN
     Route: 061
     Dates: start: 20110421
  26. EURAX [Concomitant]
     Indication: PROPHYLAXIS
     Route: 061
     Dates: start: 20100817, end: 20100820

REACTIONS (26)
  - Urinary tract infection [Recovering/Resolving]
  - Urinary tract infection [Recovered/Resolved]
  - Hyponatraemia [Recovered/Resolved]
  - White blood cell count decreased [Recovered/Resolved]
  - Neutrophil count decreased [Recovering/Resolving]
  - Diarrhoea [Recovered/Resolved]
  - Hyponatraemia [Recovering/Resolving]
  - Rash [Recovering/Resolving]
  - Anaemia [Recovering/Resolving]
  - White blood cell count decreased [Recovered/Resolved]
  - Neutrophil count decreased [Recovered/Resolved]
  - Anaemia [Recovered/Resolved]
  - Platelet count decreased [Recovered/Resolved]
  - White blood cell count decreased [Recovered/Resolved]
  - Neutrophil count decreased [Recovered/Resolved]
  - Vomiting [Recovered/Resolved]
  - Hypoglycaemia [Recovered/Resolved]
  - Anaemia [Recovering/Resolving]
  - White blood cell count decreased [Recovered/Resolved]
  - Neutrophil count decreased [Recovered/Resolved]
  - White blood cell count decreased [Recovered/Resolved]
  - Neutrophil count decreased [Recovered/Resolved]
  - Hypopituitarism [Recovering/Resolving]
  - White blood cell count decreased [Recovered/Resolved]
  - Anaemia [Recovering/Resolving]
  - Blood creatinine increased [Recovering/Resolving]
